FAERS Safety Report 9231906 (Version 1)
Quarter: 2013Q2

REPORT INFORMATION
  Report Type: Spontaneous
  Country: DE (occurrence: DE)
  Receive Date: 20130415
  Receipt Date: 20130415
  Transmission Date: 20140414
  Serious: Yes (Other)
  Sender: FDA-Public Use
  Company Number: DE-PFIZER INC-2013114051

PATIENT
  Age: 70 Year
  Sex: Male
  Weight: 80 kg

DRUGS (2)
  1. ATORVASTATIN PFIZER [Suspect]
     Indication: CARDIAC DISCOMFORT
     Dosage: 1 DF, 1X/DAY
     Route: 048
     Dates: start: 20121010
  2. ENALAPRIL [Suspect]
     Indication: CARDIAC DISCOMFORT
     Dosage: 1 DF, 1X/DAY
     Route: 048
     Dates: start: 20121010

REACTIONS (3)
  - Myalgia [Recovered/Resolved with Sequelae]
  - Arthralgia [Recovered/Resolved with Sequelae]
  - Muscle atrophy [Recovered/Resolved with Sequelae]
